FAERS Safety Report 9782789 (Version 1)
Quarter: 2013Q4

REPORT INFORMATION
  Report Type: Spontaneous
  Country: US (occurrence: US)
  Receive Date: 20131226
  Receipt Date: 20131226
  Transmission Date: 20140711
  Serious: No
  Sender: FDA-Public Use
  Company Number: US-ABBVIE-13P-163-1066625-00

PATIENT
  Age: 85 Year
  Sex: Male

DRUGS (1)
  1. LUPRON DEPOT [Suspect]
     Indication: PRODUCT USED FOR UNKNOWN INDICATION

REACTIONS (16)
  - Joint swelling [Unknown]
  - Oedema peripheral [Unknown]
  - Gait disturbance [Unknown]
  - Hot flush [Unknown]
  - Erectile dysfunction [Unknown]
  - Penis disorder [Unknown]
  - Scrotal disorder [Unknown]
  - Constipation [Recovered/Resolved]
  - Dysuria [Unknown]
  - Pollakiuria [Recovered/Resolved]
  - Urinary tract infection [Recovered/Resolved]
  - Vertigo [Unknown]
  - Vertigo [Unknown]
  - Blood glucose increased [Unknown]
  - Dizziness [Unknown]
  - Fatigue [Unknown]
